FAERS Safety Report 8056985-8 (Version None)
Quarter: 2012Q1

REPORT INFORMATION
  Report Type: 
  Country: None (occurrence: None)
  Receive Date: 20120119
  Receipt Date: 20110907
  Transmission Date: 20120608
  Serious: No
  Sender: FDA-Public Use
  Company Number: US-SANOFI-AVENTIS-2011SA058461

PATIENT
  Age: 47 Year
  Sex: Female
  Weight: 108.6 kg

DRUGS (4)
  1. TADALAFIL [Concomitant]
  2. LASIX [Suspect]
     Route: 065
  3. DIURETICS [Concomitant]
  4. ALL OTHER THERAPEUTIC PRODUCTS [Suspect]
     Route: 055
     Dates: start: 20110810

REACTIONS (2)
  - DIARRHOEA [None]
  - EAR DISCOMFORT [None]
